FAERS Safety Report 6783932-9 (Version None)
Quarter: 2010Q2

REPORT INFORMATION
  Report Type: 
  Country: None (occurrence: None)
  Receive Date: 20100622
  Receipt Date: 20100615
  Transmission Date: 20101027
  Serious: Yes (Hospitalization)
  Sender: FDA-Public Use
  Company Number: US-SANOFI-AVENTIS-2010SA032115

PATIENT
  Age: 82 Year
  Sex: Male
  Weight: 66.5 kg

DRUGS (8)
  1. CLOPIDOGREL BISULFATE [Suspect]
     Indication: ACUTE CORONARY SYNDROME
     Route: 048
     Dates: start: 20100219
  2. ASPIRIN [Concomitant]
     Dates: start: 20091124
  3. ATENOLOL [Concomitant]
     Dates: start: 20100214
  4. CAPTOPRIL [Concomitant]
     Dates: start: 20100216
  5. SPIRONOLACTONE [Concomitant]
     Dates: start: 20100218
  6. FUROSEMIDE [Concomitant]
     Dates: start: 20100214
  7. ISOSORBIDE [Concomitant]
     Dates: start: 20100219
  8. SINVASTATINA WINTHROP [Concomitant]
     Dates: start: 20100224

REACTIONS (1)
  - CARDIAC FAILURE [None]
